FAERS Safety Report 7061835-2 (Version None)
Quarter: 2010Q4

REPORT INFORMATION
  Report Type: 
  Country: None (occurrence: None)
  Receive Date: 20101026
  Receipt Date: 20101021
  Transmission Date: 20110411
  Serious: Yes (Death, Hospitalization)
  Sender: FDA-Public Use
  Company Number: ES-ROCHE-735572

PATIENT
  Age: 58 Year
  Sex: Male

DRUGS (5)
  1. VALGANCICLOVIR HCL [Suspect]
     Route: 048
     Dates: start: 20091201, end: 20091225
  2. MYCOPHENOLATE MOFETIL [Suspect]
     Route: 048
     Dates: start: 20090929, end: 20091227
  3. PROGRAF [Suspect]
     Route: 048
     Dates: start: 20090929, end: 20100102
  4. OMEPRAZOLE [Concomitant]
     Indication: PROPHYLAXIS
     Route: 048
     Dates: start: 20090929, end: 20100113
  5. PREDNISONE [Concomitant]
     Indication: CYTOMEGALOVIRUS INFECTION
     Route: 048
     Dates: start: 20090929, end: 20100102

REACTIONS (1)
  - AGRANULOCYTOSIS [None]
